FAERS Safety Report 12406463 (Version 1)
Quarter: 2016Q2

REPORT INFORMATION
  Report Type: Spontaneous
  Country: US (occurrence: None)
  Receive Date: 20160525
  Receipt Date: 20160525
  Transmission Date: 20160815
  Serious: Yes (Life-Threatening, Hospitalization, Other)
  Sender: FDA-Public Use
  Company Number: None

PATIENT
  Age: 27 Year
  Sex: Female
  Weight: 69.7 kg

DRUGS (6)
  1. HEROIN [Concomitant]
     Active Substance: DIACETYLMORPHINE
  2. OPANA ER [Suspect]
     Active Substance: OXYMORPHONE HYDROCHLORIDE
  3. MARIJUANA [Concomitant]
     Active Substance: CANNABIS SATIVA SUBSP. INDICA TOP
  4. MS CONTIN [Suspect]
     Active Substance: MORPHINE SULFATE
  5. OXYCODONE [Concomitant]
     Active Substance: OXYCODONE
  6. COCAINE [Concomitant]
     Active Substance: COCAINE

REACTIONS (5)
  - Septic embolus [None]
  - Staphylococcal bacteraemia [None]
  - Endocarditis [None]
  - Intentional product misuse [None]
  - Pulmonary embolism [None]

NARRATIVE: CASE EVENT DATE: 20160502
